FAERS Safety Report 18526382 (Version 1)
Quarter: 2020Q4

REPORT INFORMATION
  Report Type: Spontaneous
  Country: DE (occurrence: DE)
  Receive Date: 20201120
  Receipt Date: 20201120
  Transmission Date: 20210114
  Serious: Yes (Hospitalization)
  Sender: FDA-Public Use
  Company Number: DE-TEVA-2020-DE-1850042

PATIENT
  Age: 62 Year
  Sex: Male

DRUGS (7)
  1. CARMEN 20MG [Concomitant]
     Dosage: .5 DOSAGE FORMS DAILY; 20 MG, 0.5-0-0-0
     Route: 048
  2. TORASEMID [Concomitant]
     Active Substance: TORSEMIDE
     Dosage: 10 MG, IF NECESSARY
     Route: 048
  3. DEXAMETHASON [Suspect]
     Active Substance: DEXAMETHASONE
     Dosage: LAST 04092020
  4. RAMIPRIL/HYDROCHLOROTHIAZIDE [Concomitant]
     Active Substance: HYDROCHLOROTHIAZIDE\RAMIPRIL
     Dosage: 1 DOSAGE FORMS DAILY; 25|5 MG, 1-0-0-0
     Route: 048
  5. BORTEZOMIB. [Suspect]
     Active Substance: BORTEZOMIB
     Dosage: LAST 04092020
  6. CYCLOPHOSPHAMIDE. [Suspect]
     Active Substance: CYCLOPHOSPHAMIDE
     Dosage: LAST 04092020
  7. PANTOPRAZOL [Concomitant]
     Active Substance: PANTOPRAZOLE SODIUM
     Dosage: 40 MILLIGRAM DAILY; 1-0-0-0
     Route: 048

REACTIONS (7)
  - Anaemia [Unknown]
  - Hyposmia [Unknown]
  - Muscle spasms [Unknown]
  - Dyspnoea [Unknown]
  - Petechiae [Unknown]
  - Thrombocytopenia [Unknown]
  - Oedema peripheral [Unknown]
